FAERS Safety Report 4644421-0 (Version None)
Quarter: 2005Q2

REPORT INFORMATION
  Report Type: 
  Country: None (occurrence: None)
  Receive Date: 20050331
  Receipt Date: 20041207
  Transmission Date: 20051028
  Serious: No
  Sender: FDA-Public Use
  Company Number: 04P-163-0282512-00

PATIENT
  Age: 52 Year
  Sex: Male
  Weight: 97.5234 kg

DRUGS (5)
  1. HUMIRA [Suspect]
     Indication: RHEUMATOID ARTHRITIS
     Dosage: 40 MG, 1 IN 2 WK, SUBCUTANEOUS
     Route: 058
     Dates: start: 20040201
  2. ESOMAPRAZOLE [Concomitant]
  3. ATENOLOL [Concomitant]
  4. HYDROCHLOROTHIAZIDE [Concomitant]
  5. MULTI-VITAMINS [Concomitant]

REACTIONS (2)
  - ARTHROPATHY [None]
  - MUSCLE FATIGUE [None]
